FAERS Safety Report 10072414 (Version 2)
Quarter: 2014Q2

REPORT INFORMATION
  Report Type: Spontaneous
  Country: US (occurrence: None)
  Receive Date: 20140409
  Receipt Date: 20140418
  Transmission Date: 20141212
  Serious: Yes (Other)
  Sender: FDA-Public Use
  Company Number: 2014-US-003689

PATIENT
  Age: 28 Year
  Sex: Female

DRUGS (3)
  1. XYREM [Suspect]
     Indication: NARCOLEPSY
     Route: 048
     Dates: start: 201307, end: 201310
  2. PROVIGIL [Suspect]
     Indication: PRODUCT USED FOR UNKNOWN INDICATION
  3. NUVIGIL [Suspect]
     Indication: PRODUCT USED FOR UNKNOWN INDICATION

REACTIONS (6)
  - Loss of consciousness [None]
  - Thirst [None]
  - Treatment noncompliance [None]
  - Bradycardia [None]
  - Somnolence [None]
  - Drug ineffective [None]
